FAERS Safety Report 10356621 (Version 1)
Quarter: 2014Q3

REPORT INFORMATION
  Report Type: Spontaneous
  Country: US (occurrence: None)
  Receive Date: 20140730
  Receipt Date: 20140730
  Transmission Date: 20150326
  Serious: Yes (Other)
  Sender: FDA-Public Use
  Company Number: None

PATIENT
  Age: 60 Year
  Sex: Male
  Weight: 189.54 kg

DRUGS (5)
  1. METFORMIN [Concomitant]
     Active Substance: METFORMIN HYDROCHLORIDE
  2. LISINOPRIL. [Concomitant]
     Active Substance: LISINOPRIL
  3. LASIX [Concomitant]
     Active Substance: FUROSEMIDE
  4. WARFARIN [Suspect]
     Active Substance: WARFARIN
  5. VIBATIV [Suspect]
     Active Substance: TELAVANCIN HYDROCHLORIDE
     Indication: CELLULITIS
     Route: 042
     Dates: start: 20140725

REACTIONS (5)
  - Retching [None]
  - Oral discomfort [None]
  - Nausea [None]
  - Infusion related reaction [None]
  - Lip swelling [None]

NARRATIVE: CASE EVENT DATE: 20140725
